FAERS Safety Report 10931072 (Version 1)
Quarter: 2015Q1

REPORT INFORMATION
  Report Type: Spontaneous
  Country: US (occurrence: None)
  Receive Date: 20150225
  Receipt Date: 20150225
  Transmission Date: 20150721
  Serious: Yes (Hospitalization)
  Sender: FDA-Public Use
  Company Number: 2014-US-011133

PATIENT
  Age: 53 Year
  Sex: Male
  Weight: 255 kg

DRUGS (9)
  1. PRIALT [Suspect]
     Active Substance: ZICONOTIDE ACETATE
     Indication: SPINAL OSTEOARTHRITIS
     Route: 037
     Dates: end: 20141016
  2. TIZANIDINE HYDROCHLORIDE (TIZANIDINE HYDROCHLORIDE) [Concomitant]
  3. CYCLOBENZAPRINE HYDROCHLORIDE. [Concomitant]
     Active Substance: CYCLOBENZAPRINE HYDROCHLORIDE
  4. VITAMIN B COMPLEX [Concomitant]
     Active Substance: CYANOCOBALAMIN\DEXPANTHENOL\NIACINAMIDE\PYRIDOXINE HYDROCHLORIDE\RIBOFLAVIN 5^-PHOSPHATE SODIUM\THIAMINE HYDROCHLORIDE\VITAMIN B COMPLEX
  5. MELOXICAM. [Concomitant]
     Active Substance: MELOXICAM
  6. PRIALT [Suspect]
     Active Substance: ZICONOTIDE ACETATE
     Indication: RADICULITIS LUMBOSACRAL
     Route: 037
     Dates: end: 20141016
  7. METFORMIN ER (METFORMIN HYDROCHLORIDE) [Concomitant]
  8. LISINOPRIL. [Concomitant]
     Active Substance: LISINOPRIL
  9. LYRICA [Concomitant]
     Active Substance: PREGABALIN

REACTIONS (13)
  - Dizziness [None]
  - Dysuria [None]
  - Myalgia [None]
  - Gait disturbance [None]
  - Muscular weakness [None]
  - Hypoaesthesia [None]
  - Dyspnoea [None]
  - Drug ineffective [None]
  - Back pain [None]
  - Vomiting [None]
  - Sleep disorder [None]
  - Ataxia [None]
  - Paraesthesia [None]

NARRATIVE: CASE EVENT DATE: 201408
